FAERS Safety Report 5194204-0 (Version None)
Quarter: 2006Q4

REPORT INFORMATION
  Report Type: 
  Country: None (occurrence: None)
  Receive Date: 20061228
  Receipt Date: 20061219
  Transmission Date: 20070319
  Serious: Yes (Hospitalization)
  Sender: FDA-Public Use
  Company Number: GB-PFIZER INC-2006155017

PATIENT
  Sex: Female

DRUGS (2)
  1. DETRUSITOL [Suspect]
     Indication: DYSURIA
  2. ALL OTHER THERAPEUTIC PRODUCTS [Concomitant]

REACTIONS (6)
  - ADNEXA UTERI MASS [None]
  - BACK PAIN [None]
  - DYSURIA [None]
  - MALAISE [None]
  - URINARY RETENTION [None]
  - URINE FLOW DECREASED [None]
